FAERS Safety Report 6110838-0 (Version None)
Quarter: 2009Q1

REPORT INFORMATION
  Report Type: 
  Country: None (occurrence: None)
  Receive Date: 20090311
  Receipt Date: 20090305
  Transmission Date: 20090719
  Serious: Yes (Hospitalization)
  Sender: FDA-Public Use
  Company Number: US-JNJFOC-20090301827

PATIENT
  Sex: Female
  Weight: 84.82 kg

DRUGS (1)
  1. DURAGESIC-100 [Suspect]
     Indication: PAIN
     Dosage: 100 MCG + 50 MCG
     Route: 062

REACTIONS (2)
  - CONGENITAL ANOMALY [None]
  - INAPPROPRIATE SCHEDULE OF DRUG ADMINISTRATION [None]
